FAERS Safety Report 4398486-4 (Version None)
Quarter: 2004Q3

REPORT INFORMATION
  Report Type: 
  Country: None (occurrence: None)
  Receive Date: 20040714
  Receipt Date: 20040714
  Transmission Date: 20050211
  Serious: Yes (Hospitalization)
  Sender: FDA-Public Use
  Company Number: None

PATIENT
  Age: 86 Year
  Sex: Female
  Weight: 81.1939 kg

DRUGS (9)
  1. VANCOMYCIN [Suspect]
     Indication: INFECTION
     Dosage: 1 G IV Q 72 H
     Route: 042
     Dates: start: 20040212, end: 20040301
  2. ATARAX [Concomitant]
  3. LASIX [Concomitant]
  4. CALCIUM [Concomitant]
  5. LOPRESSOR [Concomitant]
  6. COUMADIN [Concomitant]
  7. ZOCOR [Concomitant]
  8. SENOKOT [Concomitant]
  9. K-DUR 10 [Concomitant]

REACTIONS (3)
  - DERMATITIS [None]
  - RASH GENERALISED [None]
  - RASH MACULO-PAPULAR [None]
